FAERS Safety Report 8977464 (Version 2)
Quarter: 2013Q4

REPORT INFORMATION
  Report Type: Spontaneous
  Country: US (occurrence: US)
  Receive Date: 20121220
  Receipt Date: 20131011
  Transmission Date: 20140711
  Serious: No
  Sender: FDA-Public Use
  Company Number: US-ASTRAZENECA-2012SE11828

PATIENT
  Age: 52 Year
  Sex: Female

DRUGS (10)
  1. SYMBICORT PMDI [Suspect]
     Dosage: 160/4.5 MCG, 2 PUFFS TWO TIMES A DAY
     Route: 055
     Dates: start: 20120504, end: 20120511
  2. SYMBICORT PMDI [Suspect]
     Dosage: 160/4.5 MCG, 2 PUFFS TWO TIMES A DAY.
     Route: 055
     Dates: start: 20120713
  3. NEXIUM [Suspect]
     Route: 048
  4. NEXIUM [Suspect]
     Route: 048
     Dates: start: 20120714
  5. NEXIUM [Suspect]
     Route: 048
  6. ACETAMINOPHEN-HYROCODONE BITARTRATE [Concomitant]
     Indication: PAIN
  7. ALPRAZOLAM [Concomitant]
  8. AZOR [Concomitant]
  9. SPIRIVA [Concomitant]
  10. BYSTOLIC [Concomitant]

REACTIONS (4)
  - Pain [Unknown]
  - Abdominal pain upper [Unknown]
  - Intentional drug misuse [Unknown]
  - Drug dose omission [Unknown]
